FAERS Safety Report 5465273-5 (Version None)
Quarter: 2007Q3

REPORT INFORMATION
  Report Type: 
  Country: None (occurrence: None)
  Receive Date: 20070924
  Receipt Date: 20070918
  Transmission Date: 20080115
  Serious: Yes (Life-Threatening, Hospitalization)
  Sender: FDA-Public Use
  Company Number: PHHO2007JP13953

PATIENT
  Age: 72 Year
  Sex: Female

DRUGS (1)
  1. SALAGEN (PILOCARPINE HCL) TABLETS [Suspect]
     Indication: DRY MOUTH
     Dosage: 5 MG, TID
     Route: 048
     Dates: start: 20070109, end: 20070717

REACTIONS (4)
  - DYSPNOEA EXERTIONAL [None]
  - EXERCISE TOLERANCE DECREASED [None]
  - MYOCARDIAL INFARCTION [None]
  - STENT PLACEMENT [None]
